FAERS Safety Report 17468217 (Version 5)
Quarter: 2020Q3

REPORT INFORMATION
  Report Type: Spontaneous
  Country: US (occurrence: US)
  Receive Date: 20200227
  Receipt Date: 20200928
  Transmission Date: 20201102
  Serious: Yes (Hospitalization, Other)
  Sender: FDA-Public Use
  Company Number: US-BRISTOL-MYERS SQUIBB COMPANY-BMS-2020-014280

PATIENT
  Age: 54 Year
  Sex: Male

DRUGS (2)
  1. SPRYCEL [Suspect]
     Active Substance: DASATINIB
     Indication: CHRONIC MYELOID LEUKAEMIA
     Dosage: 100 MILLIGRAM, QD
     Route: 048
     Dates: start: 20180926
  2. SPRYCEL [Suspect]
     Active Substance: DASATINIB
     Indication: PHILADELPHIA CHROMOSOME POSITIVE

REACTIONS (6)
  - Haematochezia [Unknown]
  - International normalised ratio fluctuation [Unknown]
  - Product dose omission issue [Unknown]
  - Renal disorder [Unknown]
  - Gastrointestinal haemorrhage [Unknown]
  - Pneumonia [Unknown]

NARRATIVE: CASE EVENT DATE: 20200215
